FAERS Safety Report 7230914-9 (Version None)
Quarter: 2011Q1

REPORT INFORMATION
  Report Type: 
  Country: None (occurrence: None)
  Receive Date: 20110118
  Receipt Date: 20110106
  Transmission Date: 20110831
  Serious: Yes (Hospitalization, Other)
  Sender: FDA-Public Use
  Company Number: US-ROCHE-731180

PATIENT
  Sex: Female
  Weight: 59 kg

DRUGS (1)
  1. ACCUTANE [Suspect]
     Indication: ACNE
     Route: 048
     Dates: start: 19980501, end: 19981015

REACTIONS (12)
  - DRY EYE [None]
  - DEPRESSION [None]
  - CALCULUS URETERIC [None]
  - ANAL FISSURE [None]
  - GASTROINTESTINAL INJURY [None]
  - PROCTITIS [None]
  - CROHN'S DISEASE [None]
  - ANAL FISTULA [None]
  - LIP DRY [None]
  - DRY SKIN [None]
  - PERIRECTAL ABSCESS [None]
  - NEPHROLITHIASIS [None]
